FAERS Safety Report 21088314 (Version 1)
Quarter: 2022Q3

REPORT INFORMATION
  Report Type: Spontaneous
  Country: US (occurrence: None)
  Receive Date: 20220715
  Receipt Date: 20220715
  Transmission Date: 20221027
  Serious: Yes (Hospitalization)
  Sender: FDA-Public Use
  Company Number: None

PATIENT
  Sex: Male
  Weight: 74.9 kg

DRUGS (3)
  1. IFOSFAMIDE [Suspect]
     Active Substance: IFOSFAMIDE
     Dates: end: 20220622
  2. TAXOL [Suspect]
     Active Substance: PACLITAXEL
     Dates: end: 20220620
  3. FILGRASTIM [Suspect]
     Active Substance: FILGRASTIM
     Dosage: FREQUENCY : TWICE A DAY;?
     Dates: end: 20220614

REACTIONS (4)
  - Malaise [None]
  - Neutropenia [None]
  - Raoultella test positive [None]
  - Bacterial infection [None]

NARRATIVE: CASE EVENT DATE: 20220706
